FAERS Safety Report 20656690 (Version 2)
Quarter: 2022Q2

REPORT INFORMATION
  Report Type: Spontaneous
  Country: FR (occurrence: None)
  Receive Date: 20220331
  Receipt Date: 20220414
  Transmission Date: 20220721
  Serious: Yes (Death, Hospitalization)
  Sender: FDA-Public Use
  Company Number: FR-Orion Corporation ORION PHARMA-TREX2022-0055

PATIENT
  Age: 88 Year
  Sex: Female

DRUGS (9)
  1. METHOTREXATE SODIUM [Interacting]
     Active Substance: METHOTREXATE SODIUM
     Indication: Rheumatoid arthritis
     Dosage: LONG TERM
     Route: 048
     Dates: end: 20220224
  2. AMOXICILLIN [Interacting]
     Active Substance: AMOXICILLIN
     Indication: Tooth infection
     Route: 048
     Dates: start: 202202, end: 20220224
  3. AUGMENTIN [Interacting]
     Active Substance: AMOXICILLIN\CLAVULANATE POTASSIUM
     Indication: Tooth infection
     Route: 048
     Dates: start: 202202, end: 20220224
  4. FOLIC ACID [Concomitant]
     Active Substance: FOLIC ACID
     Route: 065
  5. PAROXETINE HYDROCHLORIDE [Concomitant]
     Active Substance: PAROXETINE HYDROCHLORIDE
     Route: 065
  6. ESIDREX [Concomitant]
     Active Substance: HYDROCHLOROTHIAZIDE
     Route: 065
  7. ABATACEPT [Concomitant]
     Active Substance: ABATACEPT
     Route: 065
  8. ORENCIA [Concomitant]
     Active Substance: ABATACEPT
     Indication: Rheumatoid arthritis
     Route: 065
  9. DOLIPRANE [Concomitant]
     Active Substance: ACETAMINOPHEN
     Indication: Tooth infection
     Route: 065

REACTIONS (5)
  - Pancytopenia [Fatal]
  - Stomatitis [Fatal]
  - Neutropenia [Unknown]
  - Oral herpes [Unknown]
  - Drug interaction [Unknown]

NARRATIVE: CASE EVENT DATE: 20220226
